FAERS Safety Report 13046699 (Version 1)
Quarter: 2016Q4

REPORT INFORMATION
  Report Type: Spontaneous
  Country: US (occurrence: US)
  Receive Date: 20161220
  Receipt Date: 20161220
  Transmission Date: 20170207
  Serious: Yes (Hospitalization)
  Sender: FDA-Public Use
  Company Number: US-IMPAX LABORATORIES, INC-2016-IPXL-02319

PATIENT
  Age: 48 Year
  Sex: Female

DRUGS (1)
  1. HYDROXYZINE PAMOATE IR [Suspect]
     Active Substance: HYDROXYZINE PAMOATE
     Indication: SUICIDE ATTEMPT
     Dosage: UNK
     Route: 065

REACTIONS (7)
  - Intentional overdose [Unknown]
  - Atrial fibrillation [Recovered/Resolved]
  - Suicide attempt [None]
  - Haemoptysis [None]
  - Pulmonary alveolar haemorrhage [None]
  - Thyrotoxic crisis [Recovered/Resolved]
  - Respiratory failure [None]
